FAERS Safety Report 6641853-6 (Version None)
Quarter: 2010Q1

REPORT INFORMATION
  Report Type: 
  Country: None (occurrence: None)
  Receive Date: 20100319
  Receipt Date: 20100310
  Transmission Date: 20100710
  Serious: Yes (Hospitalization)
  Sender: FDA-Public Use
  Company Number: US-ASTRAZENECA-2010SE10378

PATIENT
  Age: 55 Year
  Sex: Female
  Weight: 68 kg

DRUGS (4)
  1. SEROQUEL XR [Suspect]
     Indication: DEPRESSION SUICIDAL
     Route: 048
     Dates: start: 20080101
  2. WELLBUTRIN [Concomitant]
     Indication: ANXIETY
  3. EFFEXOR [Concomitant]
  4. CLONAZEPAM [Concomitant]

REACTIONS (2)
  - HYPERTENSION [None]
  - STRESS CARDIOMYOPATHY [None]
